FAERS Safety Report 4454891-9 (Version None)
Quarter: 2004Q3

REPORT INFORMATION
  Report Type: 
  Country: None (occurrence: None)
  Receive Date: 20040826
  Receipt Date: 20040525
  Transmission Date: 20050211
  Serious: No
  Sender: FDA-Public Use
  Company Number: WAES 0405USA01855

PATIENT
  Age: 68 Year
  Sex: Female

DRUGS (6)
  1. ZETIA [Suspect]
     Indication: HYPERCHOLESTEROLAEMIA
     Dosage: 10 MG/DAILY/PO
     Route: 048
     Dates: start: 20040325
  2. PREVACID [Concomitant]
  3. TYLENOL [Concomitant]
  4. XANAX [Concomitant]
  5. ZOLOFT [Concomitant]
  6. ASPIRIN [Concomitant]

REACTIONS (3)
  - DEPRESSION [None]
  - FATIGUE [None]
  - WEIGHT INCREASED [None]
